FAERS Safety Report 6860403-2 (Version None)
Quarter: 2010Q3

REPORT INFORMATION
  Report Type: 
  Country: None (occurrence: None)
  Receive Date: 20100720
  Receipt Date: 20100707
  Transmission Date: 20110219
  Serious: Yes (Other)
  Sender: FDA-Public Use
  Company Number: US-ELI_LILLY_AND_COMPANY-US201007001412

PATIENT
  Sex: Female

DRUGS (3)
  1. CYMBALTA [Suspect]
     Indication: DEPRESSION
     Dosage: UNK, UNKNOWN
     Route: 065
  2. LYRICA [Interacting]
     Indication: FIBROMYALGIA
     Dosage: 300 MG, DAILY (1/D)
     Route: 065
  3. LYRICA [Interacting]
     Dosage: 150 MG, DAILY (1/D)
     Route: 065

REACTIONS (2)
  - DRUG INTERACTION [None]
  - FIBROMYALGIA [None]
